FAERS Safety Report 23216134 (Version 1)
Quarter: 2023Q4

REPORT INFORMATION
  Report Type: Spontaneous
  Country: US (occurrence: US)
  Receive Date: 20231122
  Receipt Date: 20231122
  Transmission Date: 20240109
  Serious: Yes (Other)
  Sender: FDA-Public Use
  Company Number: US-ENDO-CASE-0045355

PATIENT
  Sex: Male

DRUGS (10)
  1. PERCOCET [Suspect]
     Active Substance: ACETAMINOPHEN\OXYCODONE HYDROCHLORIDE
  2. ACETAMINOPHEN\OXYCODONE HYDROCHLORIDE [Suspect]
     Active Substance: ACETAMINOPHEN\OXYCODONE HYDROCHLORIDE
  3. ENDOCET [Suspect]
     Active Substance: ACETAMINOPHEN\OXYCODONE HYDROCHLORIDE
  4. OPANA ER [Suspect]
     Active Substance: OXYMORPHONE HYDROCHLORIDE
  5. GUAIFENESIN\HYDROCODONE BITARTRATE [Suspect]
     Active Substance: GUAIFENESIN\HYDROCODONE BITARTRATE
  6. MORPHINE SULFATE [Suspect]
     Active Substance: MORPHINE SULFATE
  7. CHERATUSSIN AC [Suspect]
     Active Substance: CODEINE PHOSPHATE\GUAIFENESIN
  8. DARVON-N [Suspect]
     Active Substance: PROPOXYPHENE NAPSYLATE
  9. FENTANYL CITRATE [Suspect]
     Active Substance: FENTANYL CITRATE
  10. DEPODUR [Suspect]
     Active Substance: MORPHINE SULFATE

REACTIONS (2)
  - Overdose [Unknown]
  - Dependence [Unknown]
